FAERS Safety Report 5195337-5 (Version None)
Quarter: 2006Q4

REPORT INFORMATION
  Report Type: 
  Country: None (occurrence: None)
  Receive Date: 20061229
  Receipt Date: 20061219
  Transmission Date: 20070319
  Serious: Yes (Other)
  Sender: FDA-Public Use
  Company Number: BR-PFIZER INC-2006154987

PATIENT
  Sex: Female

DRUGS (3)
  1. CELEBREX [Suspect]
     Indication: ARTHROPATHY
     Route: 048
  2. CELEBREX [Suspect]
     Indication: OEDEMA PERIPHERAL
  3. XALATAN [Concomitant]

REACTIONS (3)
  - DRUG INEFFECTIVE [None]
  - KNEE OPERATION [None]
  - OEDEMA PERIPHERAL [None]
